FAERS Safety Report 8993530 (Version 1)
Quarter: 2013Q1

REPORT INFORMATION
  Report Type: Report from Study
  Country: CA (occurrence: CA)
  Receive Date: 20130102
  Receipt Date: 20130102
  Transmission Date: 20140127
  Serious: Yes (Hospitalization)
  Sender: FDA-Public Use
  Company Number: CA-BRISTOL-MYERS SQUIBB COMPANY-14754931

PATIENT
  Age: 71 Year
  Sex: Male

DRUGS (4)
  1. DASATINIB [Suspect]
     Indication: PROSTATE CANCER
     Dosage: INITIALLY INTERRUPTED, THEN DC^D.INTERRUPTED ON 14AUG09
     Route: 048
     Dates: start: 20090716, end: 20090902
  2. DOCETAXEL [Suspect]
     Indication: PROSTATE CANCER
     Route: 042
     Dates: start: 20090716, end: 20090806
  3. PREDNISONE [Suspect]
     Indication: PROSTATE CANCER
     Route: 048
     Dates: start: 20090716, end: 20090907
  4. DEXAMETHASONE [Suspect]
     Indication: PREMEDICATION

REACTIONS (3)
  - Dehydration [Recovered/Resolved]
  - Asthenia [Recovered/Resolved]
  - Diarrhoea [Recovered/Resolved]
